FAERS Safety Report 12470077 (Version 1)
Quarter: 2016Q2

REPORT INFORMATION
  Report Type: Report from Study
  Country: IE (occurrence: IE)
  Receive Date: 20160616
  Receipt Date: 20160616
  Transmission Date: 20160815
  Serious: Yes (Hospitalization)
  Sender: FDA-Public Use
  Company Number: IE-AMGEN-IRLSL2016074521

PATIENT
  Age: 78 Year
  Sex: Male

DRUGS (12)
  1. BURINEX [Concomitant]
     Active Substance: BUMETANIDE
     Dosage: 1 MG, BID
     Route: 050
  2. UROREC [Concomitant]
     Active Substance: SILODOSIN
     Dosage: 8 MG, QD
     Route: 050
  3. DESUNIN [Concomitant]
     Active Substance: CHOLECALCIFEROL
     Dosage: 800 UNIT, QD
     Route: 050
  4. BISOPROLOL [Concomitant]
     Active Substance: BISOPROLOL
     Dosage: 1.25 MG, QD
     Route: 050
  5. RANEXA [Concomitant]
     Active Substance: RANOLAZINE
     Dosage: 375 MG, BID
     Route: 050
  6. ARANESP [Suspect]
     Active Substance: DARBEPOETIN ALFA
     Indication: CHRONIC KIDNEY DISEASE
     Dosage: 20 MUG, QMO
     Route: 058
     Dates: start: 20160409
  7. GALFER [Concomitant]
     Active Substance: IRON
     Dosage: 305 MG, QD
     Route: 050
  8. PANTOFLUX [Concomitant]
     Dosage: 40 MG, QD
     Route: 050
  9. CORDARONE [Concomitant]
     Active Substance: AMIODARONE HYDROCHLORIDE
     Dosage: 200 MG, QD
     Route: 050
  10. ARANESP [Suspect]
     Active Substance: DARBEPOETIN ALFA
     Dosage: 30 MUG, Q2WK
     Route: 058
     Dates: start: 20160522
  11. ATORVASTATIN [Concomitant]
     Active Substance: ATORVASTATIN
     Dosage: 20 MG, QD
     Route: 050
  12. RAMIPRIL. [Concomitant]
     Active Substance: RAMIPRIL
     Dosage: 1.25 MG, QD
     Route: 050

REACTIONS (2)
  - Hospitalisation [Recovered/Resolved]
  - Haemoglobin abnormal [Unknown]

NARRATIVE: CASE EVENT DATE: 20160522
